FAERS Safety Report 19949553 (Version 1)
Quarter: 2021Q4

REPORT INFORMATION
  Report Type: Other
  Country: KR (occurrence: KR)
  Receive Date: 20211013
  Receipt Date: 20211013
  Transmission Date: 20220303
  Serious: Yes (Hospitalization)
  Sender: FDA-Public Use
  Company Number: KR-ROCHE-2929717

PATIENT
  Age: 78 Year
  Sex: Male
  Weight: 74.4 kg

DRUGS (9)
  1. ATEZOLIZUMAB [Suspect]
     Active Substance: ATEZOLIZUMAB
     Indication: Hepatocellular carcinoma
     Dosage: SUBSEQUENT DOSE 1200 MG OF ATEZOLIZUMAB WAS RECEIVED ON 29/JUL/2021, 19/AUG/2021, 08/SEP/2021
     Route: 041
     Dates: start: 20210709
  2. BEVACIZUMAB [Suspect]
     Active Substance: BEVACIZUMAB
     Indication: Hepatocellular carcinoma
     Dosage: SUBSEQUENT DOSE 15 MG/KG OF BEVACIZUMAB ON 29/JUL/2021, 19/AUG/2021, 08/SEP/2021
     Route: 042
     Dates: start: 20210709
  3. DIABEX [Concomitant]
     Active Substance: METFORMIN HYDROCHLORIDE
     Indication: Diabetes mellitus
     Dates: start: 20210708, end: 20210709
  4. METFORMIN HYDROCHLORIDE [Concomitant]
     Active Substance: METFORMIN HYDROCHLORIDE
     Indication: Diabetes mellitus
     Route: 048
  5. LIVIDI [Concomitant]
     Indication: Hepatic cirrhosis
     Route: 048
  6. REBAMIPIDE [Concomitant]
     Active Substance: REBAMIPIDE
     Indication: Gastritis
  7. GODEX (SOUTH KOREA) [Concomitant]
     Dates: start: 20210708, end: 20210709
  8. GASTER [Concomitant]
     Active Substance: FAMOTIDINE
     Indication: Gastritis
     Dates: start: 20210708, end: 20210709
  9. ALDACTONE [Concomitant]
     Active Substance: SPIRONOLACTONE
     Dates: start: 20210930

REACTIONS (3)
  - Thrombocytopenia [Recovering/Resolving]
  - Constipation [Recovered/Resolved]
  - Ascites [Recovered/Resolved]

NARRATIVE: CASE EVENT DATE: 20210728
